FAERS Safety Report 7676448-9 (Version None)
Quarter: 2011Q3

REPORT INFORMATION
  Report Type: 
  Country: None (occurrence: None)
  Receive Date: 20110805
  Receipt Date: 20110722
  Transmission Date: 20111222
  Serious: Yes (Hospitalization)
  Sender: FDA-Public Use
  Company Number: TPA2011A04331

PATIENT
  Age: 61 Year
  Sex: Female
  Weight: 86.1834 kg

DRUGS (4)
  1. ACTOS [Suspect]
     Indication: TYPE 2 DIABETES MELLITUS
     Dosage: 45 MG, 1 IN 1 D,  PER ORAL
     Route: 048
     Dates: start: 20100701
  2. LISINOPRIL [Concomitant]
  3. JANUVIA [Concomitant]
  4. SIMVASTATIN [Concomitant]

REACTIONS (1)
  - UTERINE CANCER [None]
